FAERS Safety Report 7232923-2 (Version None)
Quarter: 2011Q1

REPORT INFORMATION
  Report Type: 
  Country: None (occurrence: None)
  Receive Date: 20110119
  Receipt Date: 20110112
  Transmission Date: 20110831
  Serious: Yes (Life-Threatening)
  Sender: FDA-Public Use
  Company Number: PHHY2011US02794

PATIENT
  Sex: Male

DRUGS (2)
  1. EXTAVIA [Suspect]
     Dosage: UNK
     Route: 058
     Dates: start: 20110116
  2. EXTAVIA [Suspect]
     Indication: MULTIPLE SCLEROSIS
     Dosage: 0.25 MG, QOD
     Route: 058
     Dates: start: 20110108, end: 20110108

REACTIONS (4)
  - FEELING ABNORMAL [None]
  - ORAL HERPES [None]
  - HEADACHE [None]
  - INFLUENZA LIKE ILLNESS [None]
